FAERS Safety Report 14028211 (Version 3)
Quarter: 2018Q1

REPORT INFORMATION
  Report Type: Spontaneous
  Country: IT (occurrence: IT)
  Receive Date: 20171002
  Receipt Date: 20180213
  Transmission Date: 20180508
  Serious: Yes (Other)
  Sender: FDA-Public Use
  Company Number: PHHY2015IT124989

PATIENT
  Age: 52 Year
  Sex: Female

DRUGS (1)
  1. GILENYA [Suspect]
     Active Substance: FINGOLIMOD HYDROCHLORIDE
     Indication: MULTIPLE SCLEROSIS
     Dosage: 0.5 MG, QD
     Route: 048
     Dates: start: 20130226, end: 20160921

REACTIONS (3)
  - Psoriasis [Recovered/Resolved]
  - Skin disorder [Unknown]
  - Skin discomfort [Recovered/Resolved]

NARRATIVE: CASE EVENT DATE: 20150825
